FAERS Safety Report 5121982-9 (Version None)
Quarter: 2006Q4

REPORT INFORMATION
  Report Type: 
  Country: None (occurrence: None)
  Receive Date: 20061003
  Receipt Date: 20060925
  Transmission Date: 20070319
  Serious: Yes (Death, Other)
  Sender: FDA-Public Use
  Company Number: 2006-02466

PATIENT
  Age: 62 Year
  Sex: Female

DRUGS (2)
  1. VELCADE [Suspect]
     Indication: LEUKAEMIA PLASMACYTIC
     Dosage: 1.30 MG/M2, INTRAVENOUS
     Route: 042
     Dates: start: 20040801
  2. DEXAMETHASONE TAB [Concomitant]

REACTIONS (3)
  - STATUS EPILEPTICUS [None]
  - THERAPY NON-RESPONDER [None]
  - TUMOUR LYSIS SYNDROME [None]
